FAERS Safety Report 19888843 (Version 1)
Quarter: 2021Q3

REPORT INFORMATION
  Report Type: Spontaneous
  Country: US (occurrence: US)
  Receive Date: 20210928
  Receipt Date: 20210928
  Transmission Date: 20211014
  Serious: No
  Sender: FDA-Public Use
  Company Number: None

PATIENT
  Age: 44 Year
  Sex: Female
  Weight: 103 kg

DRUGS (1)
  1. CASIRIVIMAB, IMDEVIMAB [Suspect]
     Active Substance: CASIRIVIMAB\IMDEVIMAB
     Indication: COVID-19
     Dates: start: 20210927, end: 20210927

REACTIONS (1)
  - Product preparation error [None]

NARRATIVE: CASE EVENT DATE: 20210927
